FAERS Safety Report 5765248-2 (Version None)
Quarter: 2008Q2

REPORT INFORMATION
  Report Type: 
  Country: None (occurrence: None)
  Receive Date: 20080611
  Receipt Date: 20080602
  Transmission Date: 20081010
  Serious: Yes (Other)
  Sender: FDA-Public Use
  Company Number: JP-ABBOTT-07P-087-0373343-00

PATIENT
  Age: 75 Year
  Sex: Male

DRUGS (9)
  1. LEUPROLIDE ACETATE [Suspect]
     Indication: PROSTATE CANCER STAGE II
     Route: 058
     Dates: start: 20060530
  2. BICALUTAMIDE [Concomitant]
     Indication: PROSTATE CANCER STAGE II
     Route: 048
  3. AMLODIPINE [Concomitant]
     Indication: HYPERTENSION
     Route: 048
  4. ASPIRIN [Concomitant]
     Indication: HYPERTENSION
     Route: 048
  5. MAGNESIUM OXIDE [Concomitant]
     Indication: CONSTIPATION
     Route: 048
     Dates: end: 20070415
  6. SENNA ALEXANDRINA LEAF [Concomitant]
     Indication: CONSTIPATION
     Route: 048
     Dates: start: 20070328
  7. MAGNESIUM OXIDE [Concomitant]
     Route: 048
     Dates: start: 20070416
  8. MOSAPRIDE CITRATE [Concomitant]
     Indication: CONSTIPATION
     Route: 048
     Dates: start: 20070416
  9. NERIPROCT [Concomitant]
     Indication: CONSTIPATION
     Route: 054
     Dates: start: 20070302

REACTIONS (2)
  - ANGINA PECTORIS [None]
  - ARTERIOSCLEROSIS CORONARY ARTERY [None]
